FAERS Safety Report 8817378 (Version 2)
Quarter: 2013Q1

REPORT INFORMATION
  Report Type: Spontaneous
  Country: GB (occurrence: GB)
  Receive Date: 20121004
  Receipt Date: 20130311
  Transmission Date: 20140127
  Serious: Yes (Other)
  Sender: FDA-Public Use
  Company Number: PHHY2012GB083614

PATIENT
  Age: 21 Year
  Sex: Male

DRUGS (4)
  1. AMOXICILLIN [Suspect]
     Dosage: 1 G
     Route: 042
  2. METRONIDAZOLE [Concomitant]
     Dosage: 500 MG
     Route: 042
  3. DEXAMETHASONE [Concomitant]
     Dosage: 8 MG
     Route: 042
  4. HARTMANN^S SOLUTION [Concomitant]
     Dosage: 1 L, Q8H
     Route: 042

REACTIONS (15)
  - Confusional state [Unknown]
  - Hallucinations, mixed [Unknown]
  - Emotional distress [Unknown]
  - Delusion [Unknown]
  - Agitation [Unknown]
  - Muscle contractions involuntary [Unknown]
  - Jarisch-Herxheimer reaction [Unknown]
  - Hyperhidrosis [Unknown]
  - Respiratory alkalosis [Unknown]
  - Hyperventilation [Unknown]
  - Swelling face [Unknown]
  - Streptococcal bacteraemia [Unknown]
  - Oral infection [Unknown]
  - Sinus tachycardia [Unknown]
  - Chills [Unknown]
